FAERS Safety Report 8373355-3 (Version None)
Quarter: 2012Q2

REPORT INFORMATION
  Report Type: 
  Country: None (occurrence: None)
  Receive Date: 20120521
  Receipt Date: 20120514
  Transmission Date: 20120825
  Serious: Yes (Other)
  Sender: FDA-Public Use
  Company Number: JP-BAYER-2012-022606

PATIENT
  Age: 45 Year
  Sex: Female

DRUGS (6)
  1. HERBAL PREPARATION [Concomitant]
     Dosage: 7.5 G, QD
     Route: 048
     Dates: start: 20110927, end: 20111010
  2. YAZ [Suspect]
     Indication: DYSMENORRHOEA
     Dosage: 1 DF, QD
     Route: 048
     Dates: start: 20111011, end: 20120303
  3. YAZ [Suspect]
     Indication: ENDOMETRIOSIS
  4. SHAKUYAKUKANZOUTOU [Concomitant]
     Dosage: 5 G, QD
     Route: 048
     Dates: start: 20111008, end: 20111010
  5. LOXONIN [Concomitant]
     Indication: ABDOMINAL PAIN
     Dosage: UNK
     Route: 048
     Dates: start: 20111207
  6. YAZ [Suspect]
     Indication: ADENOMYOSIS

REACTIONS (4)
  - SUPRAVENTRICULAR TACHYCARDIA [None]
  - DYSPNOEA [None]
  - PALPITATIONS [None]
  - CHEST PAIN [None]
